FAERS Safety Report 21098192 (Version 1)
Quarter: 2022Q3

REPORT INFORMATION
  Report Type: Spontaneous
  Country: US (occurrence: None)
  Receive Date: 20220718
  Receipt Date: 20220718
  Transmission Date: 20221027
  Serious: Yes (Hospitalization)
  Sender: FDA-Public Use
  Company Number: None

PATIENT
  Age: 78 Year
  Sex: Female

DRUGS (1)
  1. CAPECITABINE [Suspect]
     Active Substance: CAPECITABINE
     Dosage: FREQUENCY : TWICE A DAY;?
     Route: 048
     Dates: start: 202205, end: 202206

REACTIONS (5)
  - Diarrhoea [None]
  - Ileus [None]
  - Dehydration [None]
  - Electrolyte imbalance [None]
  - Therapy cessation [None]

NARRATIVE: CASE EVENT DATE: 20220716
